FAERS Safety Report 5576439-8 (Version None)
Quarter: 2007Q4

REPORT INFORMATION
  Report Type: 
  Country: None (occurrence: None)
  Receive Date: 20071228
  Receipt Date: 20071218
  Transmission Date: 20080405
  Serious: Yes (Death, Life-Threatening, Hospitalization, Disabling, Other)
  Sender: FDA-Public Use
  Company Number: DE-NOVOPROD-266525

PATIENT

DRUGS (32)
  1. NOVOSEVEN [Suspect]
     Indication: TRAUMATIC HAEMORRHAGE
     Dosage: UNK, UNK
     Route: 042
     Dates: start: 20070809, end: 20070809
  2. NOR-ADRENALIN [Concomitant]
     Dosage: 5 MG, UNK
     Route: 042
     Dates: start: 20070809
  3. FENTANYL [Concomitant]
     Indication: ANALGESIA
     Dosage: 1.5 MG, UNK
     Route: 042
     Dates: start: 20070809
  4. DORMICUM                           /00036201/ [Concomitant]
     Indication: ANAESTHESIA
     Dosage: 90 MG, UNK
     Route: 042
     Dates: end: 20070810
  5. LASIX [Concomitant]
     Indication: PROPHYLAXIS
     Route: 042
     Dates: start: 20070809, end: 20070809
  6. PANCURONIUM [Concomitant]
     Indication: RELAXATION THERAPY
     Dosage: 8 MG, UNK
     Route: 042
     Dates: start: 20070805, end: 20070809
  7. ROCURONIUM BROMIDE [Concomitant]
     Indication: RELAXATION THERAPY
     Dosage: 50 MG, UNK
     Route: 042
     Dates: start: 20070805, end: 20070809
  8. PROPOFOL [Concomitant]
     Indication: SEDATION
     Dosage: 1000 MG, UNK
     Route: 042
     Dates: start: 20070805, end: 20070809
  9. PROPOFOL [Concomitant]
     Dosage: 1000 MG, UNK
     Route: 042
     Dates: start: 20070809
  10. NOREPINEPHRINE BITARTRATE [Concomitant]
     Dosage: 5 MG, UNK
     Route: 042
     Dates: start: 20070809
  11. DOBUTAMIN [Concomitant]
     Indication: CARDIOVASCULAR EVENT PROPHYLAXIS
     Dosage: 250 MG, UNK
     Route: 042
     Dates: start: 20070809
  12. DOBUTAMIN [Concomitant]
     Dosage: 250 MG/50 ML
     Route: 042
     Dates: start: 20070810, end: 20070823
  13. NEXIUM [Concomitant]
     Indication: PROPHYLAXIS AGAINST GASTROINTESTINAL ULCER
     Dosage: 40 MG, UNK
     Route: 042
     Dates: start: 20070810
  14. MIDAZOLAM HCL [Concomitant]
     Indication: SEDATION
     Dosage: 100 MG, UNK
     Route: 042
     Dates: start: 20070810
  15. PROSTAVASIN                        /00501501/ [Concomitant]
     Indication: CARDIOVASCULAR DISORDER
     Dosage: 40 MG, UNK
     Dates: start: 20070814
  16. MUCOSOLVAN                         /00546001/ [Concomitant]
     Dosage: 1000 MG, UNK
     Route: 042
     Dates: start: 20070811
  17. HEPARIN [Concomitant]
     Indication: THROMBOSIS PROPHYLAXIS
     Dosage: 5000 IE, UNK
     Route: 042
     Dates: start: 20070815, end: 20070910
  18. AMIDARONE [Concomitant]
     Dosage: 300 MG, QD
     Route: 042
     Dates: start: 20070815
  19. BELOC                              /00376902/ [Concomitant]
     Indication: PROPHYLAXIS
     Dosage: 25 MG, UNK
     Route: 042
     Dates: start: 20070815
  20. ACC                                /00082801/ [Concomitant]
     Dosage: 300 MG, QD
     Route: 042
     Dates: start: 20070815
  21. TAZOBAC                            /01173601/ [Concomitant]
     Dosage: 4.5 G, QD
     Route: 042
     Dates: start: 20070815
  22. ATROVENT [Concomitant]
     Dosage: .025 %, QD
     Route: 045
     Dates: start: 20070811
  23. ATROPINE SULFATE [Concomitant]
     Dosage: .5 UNK, QD
     Route: 042
     Dates: start: 20070809
  24. ADRENALIN                          /00003901/ [Concomitant]
     Route: 042
     Dates: start: 20070809, end: 20070809
  25. VOLUVEN                            /00375601/ [Concomitant]
     Indication: HYPOVOLAEMIA
     Dosage: 500 ML, UNK
     Route: 042
     Dates: start: 20070821, end: 20070821
  26. SUFENTA [Concomitant]
     Indication: ANALGESIA
     Dosage: 500 MICROGRAM/50
     Route: 042
     Dates: start: 20070809, end: 20070831
  27. ACE                                /00008704/ [Concomitant]
     Dosage: 300 MG, UNK
     Route: 042
     Dates: start: 20070811, end: 20070923
  28. VANCOMYCIN [Concomitant]
     Indication: CATHETER RELATED INFECTION
     Dosage: .5 G, UNK
     Route: 042
     Dates: start: 20071020, end: 20071030
  29. FURORESE                           /00032601/ [Concomitant]
     Indication: OEDEMA
     Dosage: 20 MG, UNK
     Route: 042
     Dates: start: 20071025, end: 20071031
  30. NEUROCIL                           /00038602/ [Concomitant]
     Indication: AGITATION
     Dosage: 20 MG, UNK
     Route: 042
     Dates: start: 20071004, end: 20071031
  31. ARIXTRA [Concomitant]
     Indication: THROMBOSIS PROPHYLAXIS
     Dosage: 2.5 MG, UNK
     Route: 058
     Dates: start: 20070924, end: 20071031
  32. DURAGESIC-100 [Concomitant]
     Indication: ANALGESIA
     Dosage: 50 MEQ, UNK
     Route: 062
     Dates: start: 20071029, end: 20071031

REACTIONS (9)
  - ACUTE RESPIRATORY DISTRESS SYNDROME [None]
  - CEREBRAL HAEMATOMA [None]
  - CYANOSIS [None]
  - EMBOLISM [None]
  - HEPATIC FAILURE [None]
  - HYDROCEPHALUS [None]
  - RENAL FAILURE ACUTE [None]
  - VENOUS THROMBOSIS [None]
  - VENOUS THROMBOSIS LIMB [None]
